FAERS Safety Report 8999026 (Version 1)
Quarter: 2013Q1

REPORT INFORMATION
  Report Type: Spontaneous
  Country: US (occurrence: US)
  Receive Date: 20130103
  Receipt Date: 20130103
  Transmission Date: 20140127
  Serious: No
  Sender: FDA-Public Use
  Company Number: US-009507513-1212USA010603

PATIENT
  Age: 77 Year
  Sex: Male

DRUGS (3)
  1. NASONEX [Suspect]
     Indication: HYPERSENSITIVITY
     Dosage: 50MCG/TWO SPRAYS IN EACH NOSTRIL, QD
     Route: 045
     Dates: start: 201012
  2. SIMVASTATIN [Concomitant]
  3. GEMFIBROZIL [Concomitant]

REACTIONS (5)
  - Abdominal discomfort [Not Recovered/Not Resolved]
  - Pain [Not Recovered/Not Resolved]
  - Incorrect dose administered [Unknown]
  - Gastric disorder [Recovered/Resolved]
  - Product quality issue [Unknown]
